FAERS Safety Report 12431991 (Version 1)
Quarter: 2016Q2

REPORT INFORMATION
  Report Type: Report from Study
  Country: CA (occurrence: CA)
  Receive Date: 20160603
  Receipt Date: 20160603
  Transmission Date: 20160815
  Serious: Yes (Other)
  Sender: FDA-Public Use
  Company Number: CA-AMGEN-CANSL2016069851

PATIENT
  Age: 71 Year
  Sex: Female

DRUGS (4)
  1. APO TRIAZIDE [Concomitant]
     Indication: FLUID RETENTION
     Dosage: 50MG PLUS 25MG  QD
  2. LIPITOR [Concomitant]
     Active Substance: ATORVASTATIN CALCIUM
     Dosage: 40 MG, QHS
  3. METFORMIN [Concomitant]
     Active Substance: METFORMIN HYDROCHLORIDE
     Dosage: 500 MG, TID
  4. PROLIA [Suspect]
     Active Substance: DENOSUMAB
     Indication: PRODUCT USED FOR UNKNOWN INDICATION
     Dosage: UNK
     Route: 065
     Dates: start: 20111229

REACTIONS (4)
  - Loss of consciousness [Unknown]
  - Contusion [Unknown]
  - Eye contusion [Unknown]
  - Fall [Unknown]
